FAERS Safety Report 21333070 (Version 1)
Quarter: 2022Q3

REPORT INFORMATION
  Report Type: Spontaneous
  Country: US (occurrence: US)
  Receive Date: 20220914
  Receipt Date: 20220914
  Transmission Date: 20221027
  Serious: No
  Sender: FDA-Public Use
  Company Number: US-PFIZER INC-PV202200062163

PATIENT
  Age: 89 Year
  Sex: Female

DRUGS (2)
  1. IBRANCE [Interacting]
     Active Substance: PALBOCICLIB
     Dosage: 75 MG
  2. PANTOPRAZOLE [Interacting]
     Active Substance: PANTOPRAZOLE
     Dosage: UNK

REACTIONS (1)
  - Drug interaction [Unknown]
